FAERS Safety Report 6977203-5 (Version None)
Quarter: 2010Q3

REPORT INFORMATION
  Report Type: 
  Country: None (occurrence: None)
  Receive Date: 20100910
  Receipt Date: 20100903
  Transmission Date: 20110219
  Serious: Yes (Other)
  Sender: FDA-Public Use
  Company Number: SE-PFIZER INC-2010111426

PATIENT
  Sex: Male
  Weight: 95 kg

DRUGS (4)
  1. LIPITOR [Suspect]
     Indication: BLOOD CHOLESTEROL INCREASED
     Dosage: 40 MG, UNK
     Dates: start: 20100126, end: 20100823
  2. ENALAPRIL [Concomitant]
     Dosage: UNK
  3. SELOKEN ZOC [Concomitant]
     Dosage: UNK
  4. WARAN [Concomitant]
     Dosage: UNK

REACTIONS (2)
  - DISTURBANCE IN ATTENTION [None]
  - SLEEP DISORDER [None]
